FAERS Safety Report 5902243-4 (Version None)
Quarter: 2008Q3

REPORT INFORMATION
  Report Type: 
  Country: None (occurrence: None)
  Receive Date: 20080929
  Receipt Date: 20071109
  Transmission Date: 20090109
  Serious: No
  Sender: FDA-Public Use
  Company Number: US-BAUSCH-2007BL004072

PATIENT
  Sex: Male

DRUGS (6)
  1. PROPARACAINE HCL [Suspect]
     Indication: REMOVAL OF FOREIGN BODY FROM EYE
     Route: 047
     Dates: start: 20071101, end: 20071101
  2. PROPARACAINE HCL [Suspect]
     Indication: OPHTHALMOLOGICAL EXAMINATION
     Route: 047
     Dates: start: 20071101, end: 20071101
  3. PROPARACAINE HCL [Suspect]
     Indication: EYE PAIN
     Route: 047
     Dates: start: 20071101, end: 20071101
  4. PROPARACAINE HCL [Suspect]
     Route: 047
     Dates: start: 20071101, end: 20071101
  5. PROPARACAINE HCL [Suspect]
     Route: 047
     Dates: start: 20071101, end: 20071101
  6. PROPARACAINE HCL [Suspect]
     Route: 047
     Dates: start: 20071101, end: 20071101

REACTIONS (1)
  - DRUG SCREEN POSITIVE [None]
